FAERS Safety Report 4720217-6 (Version None)
Quarter: 2005Q3

REPORT INFORMATION
  Report Type: 
  Country: None (occurrence: None)
  Receive Date: 20050719
  Receipt Date: 20050719
  Transmission Date: 20060218
  Serious: Yes (Other)
  Sender: FDA-Public Use
  Company Number: None

PATIENT
  Age: 83 Year
  Sex: Male
  Weight: 63 kg

DRUGS (2)
  1. ROCEPHIN [Suspect]
     Indication: PNEUMONIA
     Dosage: 1 GRAM QD INTRAVENOUS
     Route: 042
     Dates: start: 20050713, end: 20050714
  2. AZITHROMYCIN [Suspect]
     Indication: PNEUMONIA
     Dosage: 500 MG QD INTRAVENOUS
     Route: 042
     Dates: start: 20050713, end: 20050715

REACTIONS (1)
  - PRURITUS [None]
